FAERS Safety Report 24643752 (Version 4)
Quarter: 2025Q1

REPORT INFORMATION
  Report Type: Spontaneous
  Country: DE (occurrence: DE)
  Receive Date: 20241120
  Receipt Date: 20250220
  Transmission Date: 20250408
  Serious: Yes (Death, Hospitalization, Other)
  Sender: CSL BEHRING
  Company Number: DE-LEO Pharma-374579

PATIENT
  Age: 72 Year
  Sex: Male
  Weight: 71 kg

DRUGS (12)
  1. ALBUMIN HUMAN [Suspect]
     Active Substance: ALBUMIN HUMAN
     Indication: Hypovolaemia
     Route: 048
  2. PROTAMINE SULFATE [Suspect]
     Active Substance: PROTAMINE SULFATE
     Indication: Heparin neutralisation therapy
     Route: 042
  3. PROTAMINE SULFATE [Suspect]
     Active Substance: PROTAMINE SULFATE
     Route: 042
     Dates: start: 20241018
  4. AMLODIPINE BESYLATE [Concomitant]
     Active Substance: AMLODIPINE BESYLATE
     Indication: Hypertension
     Route: 048
  5. METOPROLOL [Concomitant]
     Active Substance: METOPROLOL
     Indication: Hypertension
     Route: 048
  6. METOPROLOL [Concomitant]
     Active Substance: METOPROLOL
     Indication: Cardiac failure
  7. DAPAGLIFLOZIN [Concomitant]
     Active Substance: DAPAGLIFLOZIN
     Indication: Cardiac failure
     Route: 048
  8. EZETIMIBE [Concomitant]
     Active Substance: EZETIMIBE
     Indication: Hypercholesterolaemia
     Route: 048
  9. SITAGLIPTIN [Concomitant]
     Active Substance: SITAGLIPTIN
     Indication: Activated partial thromboplastin time
  10. ERLEADA [Concomitant]
     Active Substance: APALUTAMIDE
     Indication: Prostate cancer
  11. DIGITOXIN [Concomitant]
     Active Substance: DIGITOXIN
     Indication: Arrhythmia
     Dosage: 0.2 MG, QD
  12. ATORVASTATIN [Concomitant]
     Active Substance: ATORVASTATIN
     Indication: Hypercholesterolaemia

REACTIONS (8)
  - Anaphylactic reaction [Fatal]
  - Urticaria [Fatal]
  - Erythema [Fatal]
  - Disseminated intravascular coagulation [Fatal]
  - Platelet count decreased [Fatal]
  - Multiple organ dysfunction syndrome [Fatal]
  - Cardiovascular insufficiency [Fatal]
  - Oedema [Fatal]

NARRATIVE: CASE EVENT DATE: 20241018
